FAERS Safety Report 5144512-4 (Version None)
Quarter: 2006Q4

REPORT INFORMATION
  Report Type: 
  Country: None (occurrence: None)
  Receive Date: 20061031
  Receipt Date: 20061026
  Transmission Date: 20070319
  Serious: Yes (Hospitalization)
  Sender: FDA-Public Use
  Company Number: FRWYE338426OCT06

PATIENT
  Age: 19 Year
  Sex: Female

DRUGS (7)
  1. RAPAMUNE [Suspect]
     Indication: PROPHYLAXIS AGAINST TRANSPLANT REJECTION
     Dosage: 4 MG TOTAL DAILY ORAL
     Route: 048
     Dates: start: 20050716
  2. CELLCEPT [Suspect]
     Indication: PROPHYLAXIS AGAINST TRANSPLANT REJECTION
     Dosage: 1 G 2X PER 1 DAY ORAL
     Route: 048
     Dates: start: 20050716
  3. COZAAR [Suspect]
     Dosage: 1 TABLET 1X PER 1 DAY ORAL
     Route: 048
  4. BISOPROLOL FUMARATE [Suspect]
     Dosage: 10 MG 1X PER 1 DAY ORAL
     Route: 048
  5. LERCANIDIPINE HYDROCHLORIDE [Suspect]
     Dosage: 10 MG 1X PER 1 DAY ORAL
     Route: 048
  6. RAMIPRIL [Suspect]
     Dosage: 5 MG 2X PER 1 DAY ORAL
     Route: 048
  7. LUTERAN    (CHLORMADIONE  ACETATE) [Concomitant]

REACTIONS (4)
  - ARTERIOVENOUS FISTULA [None]
  - CARDIAC FAILURE ACUTE [None]
  - PULMONARY HYPERTENSION [None]
  - THROMBOPHLEBITIS [None]
